FAERS Safety Report 10313492 (Version 1)
Quarter: 2014Q3

REPORT INFORMATION
  Report Type: Spontaneous
  Country: US (occurrence: None)
  Receive Date: 20140716
  Receipt Date: 20140716
  Transmission Date: 20150326
  Serious: Yes (Disabling)
  Sender: FDA-Public Use
  Company Number: ADR-2014322100

PATIENT
  Sex: Female

DRUGS (1)
  1. GABAPENTIN. [Suspect]
     Active Substance: GABAPENTIN
     Indication: SCIATICA
     Route: 048

REACTIONS (3)
  - Musculoskeletal discomfort [None]
  - Physical disability [None]
  - Nerve injury [None]

NARRATIVE: CASE EVENT DATE: 200205
